FAERS Safety Report 5650366-X (Version None)
Quarter: 2008Q1

REPORT INFORMATION
  Report Type: 
  Country: None (occurrence: None)
  Receive Date: 20080305
  Receipt Date: 20080229
  Transmission Date: 20080703
  Serious: Yes (Hospitalization, Other)
  Sender: FDA-Public Use
  Company Number: IT-BRISTOL-MYERS SQUIBB COMPANY-14083455

PATIENT
  Age: 72 Year
  Sex: Male

DRUGS (3)
  1. COUMADIN [Suspect]
     Indication: ATRIAL FIBRILLATION
     Route: 048
     Dates: start: 20071201, end: 20080121
  2. TRENTAL [Suspect]
     Indication: VENOUS STASIS
     Route: 048
     Dates: start: 20071201, end: 20080121
  3. ANTRA [Concomitant]
     Indication: GASTRITIS
     Dates: start: 20071201, end: 20080121

REACTIONS (7)
  - ANAEMIA [None]
  - CEREBRAL HAEMORRHAGE [None]
  - DYSAESTHESIA [None]
  - DYSPNOEA [None]
  - HAEMORRHAGE [None]
  - INTERNATIONAL NORMALISED RATIO INCREASED [None]
  - MELAENA [None]
